FAERS Safety Report 19566367 (Version 11)
Quarter: 2022Q4

REPORT INFORMATION
  Report Type: Report from Study
  Country: GB (occurrence: GB)
  Receive Date: 20210714
  Receipt Date: 20221005
  Transmission Date: 20230113
  Serious: Yes (Hospitalization, Other)
  Sender: FDA-Public Use
  Company Number: GB-002147023-NVSC2021GB141387

PATIENT
  Age: 8 Year
  Sex: Male
  Weight: 21.8 kg

DRUGS (78)
  1. TOPOTECAN HYDROCHLORIDE [Suspect]
     Active Substance: TOPOTECAN HYDROCHLORIDE
     Indication: Refractory cancer
     Dosage: 0.64 MG/M2, 1X/DAY (1 IN 1 DAY)
     Route: 042
     Dates: start: 20210401, end: 20210508
  2. TOPOTECAN HYDROCHLORIDE [Suspect]
     Active Substance: TOPOTECAN HYDROCHLORIDE
     Indication: Neoplasm malignant
     Dosage: 0.64 MG (1 IN 1 DAY)
     Route: 065
     Dates: start: 20210504
  3. TOPOTECAN HYDROCHLORIDE [Suspect]
     Active Substance: TOPOTECAN HYDROCHLORIDE
     Indication: Recurrent cancer
     Dosage: 0.65 MG/M2, 1X/DAY
     Route: 042
     Dates: start: 20210601, end: 20210605
  4. TOPOTECAN HYDROCHLORIDE [Suspect]
     Active Substance: TOPOTECAN HYDROCHLORIDE
     Dosage: 0.63 MG/M2, 1X/DAY
     Route: 042
     Dates: start: 20210628
  5. TOPOTECAN HYDROCHLORIDE [Suspect]
     Active Substance: TOPOTECAN HYDROCHLORIDE
     Dosage: 0.75 MG/M2, 1X/DAY(MAXIMUN 5 DAYS EVERY 21 DAYS)
     Route: 042
  6. CYCLOPHOSPHAMIDE [Suspect]
     Active Substance: CYCLOPHOSPHAMIDE
     Indication: Refractory cancer
     Dosage: 210 MG (1 IN 1 DAY)
     Route: 042
     Dates: start: 20210401, end: 20210405
  7. CYCLOPHOSPHAMIDE [Suspect]
     Active Substance: CYCLOPHOSPHAMIDE
     Dosage: 210 MG (1 IN 1 DAY)
     Route: 042
     Dates: start: 20210504
  8. VENETOCLAX [Suspect]
     Active Substance: VENETOCLAX
     Indication: Recurrent cancer
     Dosage: (350 MG- 2) (8 DAYS)
     Route: 048
     Dates: start: 20210330, end: 20210407
  9. VENETOCLAX [Suspect]
     Active Substance: VENETOCLAX
     Indication: Neoplasm malignant
     Dosage: 350 MG, 1X/DAY
     Route: 048
     Dates: start: 20210331
  10. VENETOCLAX [Suspect]
     Active Substance: VENETOCLAX
     Dosage: 350 MG, 1X/DAY  (350 MG- 2)
     Route: 065
     Dates: start: 20210504
  11. VENETOCLAX [Suspect]
     Active Substance: VENETOCLAX
     Dosage: 170 MG, 1X/DAY
     Route: 048
  12. ALLOPURINOL [Concomitant]
     Active Substance: ALLOPURINOL
     Indication: Tumour lysis syndrome
     Dosage: 240 MG (1 IN 1 DAY)
     Route: 048
     Dates: start: 20210330, end: 20210404
  13. CHLORPHENIRAMINE MALEATE [Concomitant]
     Active Substance: CHLORPHENIRAMINE MALEATE
     Indication: Allergic transfusion reaction
     Dosage: 4 MG, AS NEEDED
     Route: 042
     Dates: start: 20210329
  14. CHLORPHENIRAMINE MALEATE [Concomitant]
     Active Substance: CHLORPHENIRAMINE MALEATE
     Indication: Hypersensitivity
     Dosage: 2.5 MG, AS NEEDED
     Route: 042
     Dates: start: 20210412, end: 20210412
  15. CHLORPHENIRAMINE MALEATE [Concomitant]
     Active Substance: CHLORPHENIRAMINE MALEATE
     Dosage: 4 MG, AS NEEDED
     Route: 048
     Dates: start: 20210601
  16. CHLORPHENIRAMINE MALEATE [Concomitant]
     Active Substance: CHLORPHENIRAMINE MALEATE
     Dosage: 5 MG, AS NEEDED
     Route: 048
     Dates: start: 20210713
  17. CHOLECALCIFEROL [Concomitant]
     Active Substance: CHOLECALCIFEROL
     Indication: Vitamin supplementation
     Dosage: 1 DF, EVERY 3 WEEKS
     Route: 048
     Dates: start: 20210331
  18. COTRIMOXAZOLE [Concomitant]
     Active Substance: SULFAMETHOXAZOLE\TRIMETHOPRIM
     Indication: Antibiotic prophylaxis
     Dosage: 360 MG, 1X/DAY
     Route: 048
     Dates: start: 20210331
  19. CYCLIZINE [Concomitant]
     Active Substance: CYCLIZINE
     Indication: Antiemetic supportive care
     Dosage: 75 MG, 1X/DAY (25 MG X 3 IN 1 DAY)
     Route: 042
     Dates: start: 20210330
  20. CYCLIZINE [Concomitant]
     Active Substance: CYCLIZINE
     Dosage: 75 MG, 1X/DAY (25 MG X 3 IN 1 DAY)
     Route: 048
     Dates: start: 20210602
  21. CYCLIZINE [Concomitant]
     Active Substance: CYCLIZINE
     Dosage: 20 MG, 1X/DAY (3 IN 1 DAY)
     Route: 048
     Dates: start: 20210921
  22. DEXAMETHASONE [Concomitant]
     Active Substance: DEXAMETHASONE
     Indication: Analgesic therapy
     Dosage: 8 MG, 1X/DAY
     Route: 048
     Dates: start: 20210330, end: 20210403
  23. DEXAMETHASONE [Concomitant]
     Active Substance: DEXAMETHASONE
     Indication: Chemotherapy side effect prophylaxis
     Dosage: 4 MG, 1X/DAY
     Route: 048
     Dates: end: 20210407
  24. DEXAMETHASONE [Concomitant]
     Active Substance: DEXAMETHASONE
     Dosage: 4 MG, 2X/DAY
     Route: 048
  25. DEXAMETHASONE [Concomitant]
     Active Substance: DEXAMETHASONE
     Dosage: 4 MG, 1X/DAY
     Route: 042
     Dates: start: 20210504, end: 20210605
  26. DEXAMETHASONE [Concomitant]
     Active Substance: DEXAMETHASONE
     Dosage: 3.8 MG, 1X/DAY
     Route: 048
     Dates: start: 20210605, end: 20210609
  27. DEXAMETHASONE [Concomitant]
     Active Substance: DEXAMETHASONE
     Dosage: 4 MG, 1X/DAY
     Route: 042
     Dates: start: 20210531, end: 20210606
  28. DEXAMETHASONE [Concomitant]
     Active Substance: DEXAMETHASONE
     Dosage: 6 MG, 1X/DAY
     Route: 042
     Dates: end: 20210406
  29. DEXAMETHASONE [Concomitant]
     Active Substance: DEXAMETHASONE
     Dosage: 4 MG, 1X/DAY
     Route: 048
     Dates: start: 20210627
  30. DEXAMETHASONE [Concomitant]
     Active Substance: DEXAMETHASONE
     Dosage: 6 MG, 1X/DAY
     Route: 048
     Dates: start: 20210726
  31. DOCUSATE [Concomitant]
     Active Substance: DOCUSATE
     Indication: Constipation prophylaxis
     Dosage: 1000 MG, 1X/DAY
     Route: 048
     Dates: start: 20210329, end: 20210508
  32. DOCUSATE [Concomitant]
     Active Substance: DOCUSATE
     Indication: Constipation
     Dosage: 100 MG, QD(3 IN 1DAY)
     Route: 048
     Dates: start: 20210508
  33. DOCUSATE [Concomitant]
     Active Substance: DOCUSATE
     Indication: Faeces hard
     Dosage: 100 MG, 3X/DAY
     Route: 048
  34. DOCUSATE [Concomitant]
     Active Substance: DOCUSATE
     Dosage: 300 MG, 1X/DAY
     Route: 048
     Dates: start: 20210628
  35. DOCUSATE [Concomitant]
     Active Substance: DOCUSATE
     Dosage: 50 MG (2 IN 1 D) BID
     Route: 048
  36. DOCUSATE [Concomitant]
     Active Substance: DOCUSATE
     Dosage: 50 MG
     Route: 048
     Dates: start: 20210726
  37. GABAPENTIN [Concomitant]
     Active Substance: GABAPENTIN
     Indication: Pain
     Dosage: 200 MG, 3X/DAY
     Route: 048
     Dates: start: 20210329
  38. HEPARIN [Concomitant]
     Active Substance: HEPARIN SODIUM
     Dosage: 10 IU/ML, 3X/DAY
     Route: 042
     Dates: start: 20210329
  39. LEVOMEPROMAZINE [Concomitant]
     Active Substance: LEVOMEPROMAZINE
     Indication: Antiemetic supportive care
     Dosage: 2.2 MG, BID (1.1 MG, 2 IN D)
     Route: 065
  40. LEVOMEPROMAZINE [Concomitant]
     Active Substance: LEVOMEPROMAZINE
     Indication: Prophylaxis of nausea and vomiting
     Dosage: 2.2 MG, 1X/DAY
     Route: 042
     Dates: start: 20210507, end: 20210508
  41. LEVOMEPROMAZINE [Concomitant]
     Active Substance: LEVOMEPROMAZINE
     Dosage: 2.2 MG, AS NEEDED
     Route: 042
     Dates: start: 20210601
  42. LEVOMEPROMAZINE [Concomitant]
     Active Substance: LEVOMEPROMAZINE
     Dosage: 2.2 MG, 1X/DAY (1.1 MG, 2 IN D)
     Route: 042
     Dates: start: 20210628
  43. LEVOMEPROMAZINE [Concomitant]
     Active Substance: LEVOMEPROMAZINE
     Dosage: 6 MG, BID (3 MG, 2 IN 1 D)
     Route: 048
     Dates: start: 20210921
  44. LEVOMEPROMAZINE [Concomitant]
     Active Substance: LEVOMEPROMAZINE
     Dosage: 6 MG, BID (3 MG, 2 IN 1 D)
     Dates: start: 20210921
  45. LIPEGFILGRASTIM [Concomitant]
     Active Substance: LIPEGFILGRASTIM
     Indication: Blood disorder prophylaxis
     Dosage: 2.5 MG, 3X/DAY
     Route: 058
     Dates: start: 20210509, end: 20210510
  46. LIPEGFILGRASTIM [Concomitant]
     Active Substance: LIPEGFILGRASTIM
     Indication: Prophylaxis
     Dosage: 2.5 MG
     Route: 058
     Dates: start: 20210703
  47. METOCLOPRAMIDE [Concomitant]
     Active Substance: METOCLOPRAMIDE
     Indication: Prophylaxis of nausea and vomiting
     Dosage: 15 MG (5 MG, TID)
     Route: 042
     Dates: start: 20210330, end: 20210507
  48. METOCLOPRAMIDE [Concomitant]
     Active Substance: METOCLOPRAMIDE
     Indication: Nausea
     Dosage: 15 MG, 3X/DAY
     Route: 048
     Dates: start: 20210508
  49. METOCLOPRAMIDE [Concomitant]
     Active Substance: METOCLOPRAMIDE
     Indication: Prophylaxis of nausea and vomiting
     Dosage: 15 MG (3 MG, 3 IN 1 D) TID
     Route: 042
  50. METOCLOPRAMIDE [Concomitant]
     Active Substance: METOCLOPRAMIDE
     Indication: Antiemetic supportive care
     Dosage: 5 MG
     Route: 042
     Dates: start: 20210919
  51. MIDAZOLAM [Concomitant]
     Active Substance: MIDAZOLAM
     Indication: Pain
     Dosage: 2 MG, AS NEEDED
     Route: 048
     Dates: start: 20210321
  52. MORPHINE [Concomitant]
     Active Substance: MORPHINE
     Indication: Pain
     Dosage: 120 MG, QD (SUSTAINED RELEASE)
     Route: 048
     Dates: start: 20210504, end: 20210509
  53. MORPHINE [Concomitant]
     Active Substance: MORPHINE
     Indication: Pain in extremity
     Dosage: 10 MG, AS NEEDED
     Route: 048
     Dates: start: 20210509
  54. MORPHINE [Concomitant]
     Active Substance: MORPHINE
     Indication: Pain in extremity
     Dosage: 20 MG, PRN
     Route: 048
     Dates: end: 20210509
  55. MORPHINE [Concomitant]
     Active Substance: MORPHINE
     Dosage: 60 MG, 1X/DAY SUSTAINED RELEASE
     Route: 048
     Dates: start: 20210512, end: 20210517
  56. MORPHINE [Concomitant]
     Active Substance: MORPHINE
     Dosage: 40 MG, 1X/DAY
     Route: 048
     Dates: start: 20210517
  57. MORPHINE [Concomitant]
     Active Substance: MORPHINE
     Dosage: 80 MG, 1X/DAY SUSTAINED RELEASE
     Route: 048
     Dates: end: 20210512
  58. MORPHINE [Concomitant]
     Active Substance: MORPHINE
     Dosage: 30 MG, 2X/DAY
     Route: 048
     Dates: start: 20210628
  59. MORPHINE [Concomitant]
     Active Substance: MORPHINE
     Dosage: 10 MG, AS NEEDED
     Route: 048
     Dates: start: 20210628
  60. MOVICOL [Concomitant]
     Active Substance: POLYETHYLENE GLYCOL 3350\POTASSIUM CHLORIDE\SODIUM BICARBONATE\SODIUM CHLORIDE
     Indication: Constipation
     Dosage: (1-2 SACHETS AS REQUIRED)
     Route: 048
     Dates: start: 20210517
  61. SODIUM CHLORIDE [Concomitant]
     Active Substance: SODIUM CHLORIDE
     Indication: Tumour lysis syndrome
     Dosage: 375 ML
     Route: 042
     Dates: start: 20210330, end: 20210407
  62. OMEPRAZOLE [Concomitant]
     Active Substance: OMEPRAZOLE
     Indication: Dyspepsia
     Dosage: 20 MG, 1X/DAY
     Route: 048
     Dates: start: 20210310
  63. ONDANSETRON [Concomitant]
     Active Substance: ONDANSETRON
     Indication: Antiemetic supportive care
     Dosage: 12 MG, 3X/DAY
     Route: 042
     Dates: start: 20210330
  64. ONDANSETRON [Concomitant]
     Active Substance: ONDANSETRON
     Indication: Prophylaxis of nausea and vomiting
     Dosage: 12 MG, 3X/DAY
     Route: 042
     Dates: start: 20210602
  65. ONDANSETRON [Concomitant]
     Active Substance: ONDANSETRON
     Indication: Prophylaxis of nausea and vomiting
  66. TINZAPARIN [Concomitant]
     Active Substance: TINZAPARIN
     Indication: Anticoagulant therapy
     Dosage: 6000 IU, 1X/DAY
     Route: 058
     Dates: start: 20210526
  67. SCOPOLAMINE [Concomitant]
     Active Substance: SCOPOLAMINE
     Indication: Prophylaxis of nausea and vomiting
     Dosage: 1 MG, AS NEEDED
     Route: 061
     Dates: start: 20210601
  68. SCOPOLAMINE [Concomitant]
     Active Substance: SCOPOLAMINE
     Dosage: 0.5 MG, AS NEEDED
     Route: 061
     Dates: start: 20210630
  69. SCOPOLAMINE [Concomitant]
     Active Substance: SCOPOLAMINE
     Dosage: 0.5 MG, AS NEEDED
     Route: 061
     Dates: start: 20210922
  70. MORPHINE [Concomitant]
     Active Substance: MORPHINE
     Indication: Pain
     Dosage: 30 MG, EVERY 4 HRS
     Route: 048
     Dates: start: 20210324, end: 20210504
  71. MORPHINE [Concomitant]
     Active Substance: MORPHINE
     Dosage: 10 MG, AS NEEDED
     Route: 048
     Dates: start: 20210629
  72. MORPHINE [Concomitant]
     Active Substance: MORPHINE
     Dosage: 10 MG, AS NEEDED
     Route: 048
     Dates: start: 20210806
  73. CIPROFLOXACIN [Concomitant]
     Active Substance: CIPROFLOXACIN
     Indication: Soft tissue infection
     Dosage: 1000 MG, 2X/DAY
     Route: 048
     Dates: start: 20210924
  74. LINEZOLID [Concomitant]
     Active Substance: LINEZOLID
     Indication: Soft tissue infection
     Dosage: 600 MG, 3X/DAY
     Dates: start: 20210913
  75. ACETAMINOPHEN [Concomitant]
     Active Substance: ACETAMINOPHEN
     Indication: Pain prophylaxis
     Dosage: 330 MG, 1X/DAY
     Route: 048
     Dates: start: 20210324
  76. ACETAMINOPHEN [Concomitant]
     Active Substance: ACETAMINOPHEN
     Dosage: 330 MG, 1X/DAY
     Route: 048
     Dates: start: 20210629
  77. PIPERACILLIN SODIUM\TAZOBACTAM SODIUM [Concomitant]
     Active Substance: PIPERACILLIN SODIUM\TAZOBACTAM SODIUM
     Indication: Infection
     Dosage: 1.8 G, 1X/DAY
     Route: 042
     Dates: start: 20210806
  78. TEICOPLANIN [Concomitant]
     Active Substance: TEICOPLANIN
     Indication: Infection
     Dosage: 235 MG, 1X/DAY
     Route: 042
     Dates: start: 20210808

REACTIONS (10)
  - Febrile neutropenia [Not Recovered/Not Resolved]
  - Vomiting [Unknown]
  - Ear pain [Unknown]
  - Oropharyngeal pain [Unknown]
  - White blood cell count decreased [Unknown]
  - Groin pain [Unknown]
  - Palpitations [Unknown]
  - Nodule [Unknown]
  - Cellulitis [Unknown]
  - Pyrexia [Not Recovered/Not Resolved]

NARRATIVE: CASE EVENT DATE: 20210609
